FAERS Safety Report 14377202 (Version 1)
Quarter: 2018Q1

REPORT INFORMATION
  Report Type: Spontaneous
  Country: US (occurrence: US)
  Receive Date: 20180111
  Receipt Date: 20180111
  Transmission Date: 20180509
  Serious: No
  Sender: FDA-Public Use
  Company Number: US-DRREDDYS-USA/USA/17/0093251

PATIENT
  Age: 85 Year
  Sex: Female

DRUGS (1)
  1. HABITROL [Suspect]
     Active Substance: NICOTINE
     Indication: PRODUCT USED FOR UNKNOWN INDICATION
     Route: 065

REACTIONS (4)
  - Product quality issue [Unknown]
  - Pruritus [Unknown]
  - Erythema [Unknown]
  - Rash [Recovering/Resolving]

NARRATIVE: CASE EVENT DATE: 20170831
